FAERS Safety Report 23275307 (Version 1)
Quarter: 2023Q4

REPORT INFORMATION
  Report Type: Spontaneous
  Country: CO (occurrence: CO)
  Receive Date: 20231208
  Receipt Date: 20231208
  Transmission Date: 20240109
  Serious: Yes (Death, Hospitalization, Other)
  Sender: FDA-Public Use
  Company Number: CO-BAXTER-2023BAX037141

PATIENT
  Age: 72 Year
  Sex: Male
  Weight: 64.5 kg

DRUGS (4)
  1. DIANEAL PD-2 WITH DEXTROSE [Suspect]
     Active Substance: CALCIUM CHLORIDE\DEXTROSE\MAGNESIUM CHLORIDE\SODIUM CHLORIDE\SODIUM LACTATE
     Indication: Peritoneal dialysis
     Dosage: 2 BAGS PER DAY
     Route: 033
     Dates: start: 20170905
  2. LOSARTAN [Concomitant]
     Active Substance: LOSARTAN
     Route: 065
  3. NIFEDIPINE [Concomitant]
     Active Substance: NIFEDIPINE
     Route: 065
  4. ATORVASTATIN [Concomitant]
     Active Substance: ATORVASTATIN
     Route: 065

REACTIONS (1)
  - Intestinal obstruction [Fatal]

NARRATIVE: CASE EVENT DATE: 20231124
